FAERS Safety Report 12199234 (Version 1)
Quarter: 2016Q1

REPORT INFORMATION
  Report Type: Spontaneous
  Country: US (occurrence: None)
  Receive Date: 20160321
  Receipt Date: 20160321
  Transmission Date: 20160526
  Serious: No
  Sender: FDA-Public Use
  Company Number: None

PATIENT
  Sex: Male

DRUGS (1)
  1. FENTANYL CITRATE 100 MCG/2 ML HOSPIRA [Suspect]
     Active Substance: FENTANYL CITRATE
     Dosage: 100 UG/2 ML INTRAVENOUS
     Route: 042

REACTIONS (2)
  - Product label confusion [None]
  - Incorrect dose administered [None]

NARRATIVE: CASE EVENT DATE: 20160209
